FAERS Safety Report 18438981 (Version 4)
Quarter: 2020Q4

REPORT INFORMATION
  Report Type: Spontaneous
  Country: US (occurrence: US)
  Receive Date: 20201028
  Receipt Date: 20201210
  Transmission Date: 20210114
  Serious: Yes (Hospitalization)
  Sender: FDA-Public Use
  Company Number: US-PARATEK PHARMACEUTICALS, INC.-2020PTK00239

PATIENT
  Age: 49 Year
  Sex: Male

DRUGS (14)
  1. NUZYRA [Suspect]
     Active Substance: OMADACYCLINE
     Indication: OSTEOMYELITIS CHRONIC
     Dosage: 300 MG, 1X/DAY
     Route: 048
     Dates: start: 20200904, end: 2020
  2. NUZYRA [Suspect]
     Active Substance: OMADACYCLINE
     Indication: DIABETIC FOOT INFECTION
  3. ROCEPHIN [Suspect]
     Active Substance: CEFTRIAXONE SODIUM
     Dosage: UNK
     Route: 042
     Dates: end: 202010
  4. VANCOMYCIN [Suspect]
     Active Substance: VANCOMYCIN
     Dosage: UNK
     Route: 042
  5. 2 UNSPECIFIED HEART PILLS [Concomitant]
  6. UNSPECIFIED ^HAPPY PILL^ FOR DEPRESSION OR ANXIOUS [Concomitant]
  7. UNSPECIFIED ^FAST^ INSULIN [Concomitant]
  8. PROBIOTIC [Concomitant]
     Active Substance: PROBIOTICS NOS
  9. PHENERGAN [Concomitant]
     Active Substance: PROMETHAZINE HYDROCHLORIDE
  10. UNSPECIFIED ANTIBIOTIC STARTING WITH A ^Z^ [Suspect]
     Active Substance: UNSPECIFIED INGREDIENT
     Route: 042
  11. GABAPENTIN. [Concomitant]
     Active Substance: GABAPENTIN
  12. NUZYRA [Suspect]
     Active Substance: OMADACYCLINE
     Indication: CELLULITIS
  13. JARDIANCE [Concomitant]
     Active Substance: EMPAGLIFLOZIN
  14. UNSPECIFIED ^SLOW^ INSULIN [Concomitant]

REACTIONS (16)
  - Osteomyelitis chronic [Unknown]
  - Catheter site rash [Not Recovered/Not Resolved]
  - Pyrexia [Not Recovered/Not Resolved]
  - Pain in extremity [Not Recovered/Not Resolved]
  - Drug ineffective for unapproved indication [Recovered/Resolved]
  - Staphylococcal bacteraemia [Recovered/Resolved]
  - Rash [Recovering/Resolving]
  - Cellulitis [Recovered/Resolved]
  - Immune system disorder [Unknown]
  - Stress [Unknown]
  - Product dose omission issue [Recovered/Resolved]
  - Neuropathic arthropathy [Unknown]
  - Pruritus [Recovering/Resolving]
  - Heart rate increased [Unknown]
  - Herpes zoster [Recovered/Resolved]
  - Night sweats [Recovered/Resolved]

NARRATIVE: CASE EVENT DATE: 2020
